FAERS Safety Report 17585783 (Version 1)
Quarter: 2020Q1

REPORT INFORMATION
  Report Type: Spontaneous
  Country: US (occurrence: US)
  Receive Date: 20200326
  Receipt Date: 20200326
  Transmission Date: 20200409
  Serious: No
  Sender: FDA-Public Use
  Company Number: US-009507513-2003USA000523

PATIENT
  Age: 82 Year
  Sex: Female

DRUGS (1)
  1. PROVENTIL [Suspect]
     Active Substance: ALBUTEROL
     Indication: PNEUMONIA
     Dosage: ONE PUFF EVERY 4 HOURS OR EVERY 2 HOURS
     Dates: start: 20200226, end: 20200227

REACTIONS (4)
  - Poor quality device used [Unknown]
  - Drug ineffective [Unknown]
  - Product quality issue [Unknown]
  - Product dose omission [Unknown]

NARRATIVE: CASE EVENT DATE: 20200227
